FAERS Safety Report 9858219 (Version 1)
Quarter: 2014Q1

REPORT INFORMATION
  Report Type: Spontaneous
  Country: IT (occurrence: IT)
  Receive Date: 20140131
  Receipt Date: 20140131
  Transmission Date: 20141002
  Serious: Yes (Hospitalization)
  Sender: FDA-Public Use
  Company Number: IT-JNJFOC-20140114124

PATIENT
  Age: 35 Year
  Sex: Female

DRUGS (6)
  1. TOPAMAX [Suspect]
     Indication: HEADACHE
     Route: 048
  2. TOPAMAX [Suspect]
     Indication: HEADACHE
     Route: 048
  3. TOPAMAX [Suspect]
     Indication: HEADACHE
     Route: 048
     Dates: end: 20140102
  4. TOPAMAX [Suspect]
     Indication: HEADACHE
     Route: 048
     Dates: start: 20130915
  5. INDOXEN [Concomitant]
     Indication: PRODUCT USED FOR UNKNOWN INDICATION
     Route: 065
  6. LIOMETACEN [Concomitant]
     Indication: PRODUCT USED FOR UNKNOWN INDICATION
     Route: 065

REACTIONS (5)
  - Pancreatic enzymes increased [Recovering/Resolving]
  - Arthralgia [Recovering/Resolving]
  - Diarrhoea [Recovered/Resolved]
  - Pyrexia [Recovered/Resolved]
  - Weight decreased [Recovered/Resolved]
